FAERS Safety Report 11410203 (Version 1)
Quarter: 2015Q3

REPORT INFORMATION
  Report Type: Spontaneous
  Country: US (occurrence: None)
  Receive Date: 20150817
  Receipt Date: 20150817
  Transmission Date: 20151125
  Serious: Yes (Hospitalization)
  Sender: FDA-Public Use
  Company Number: AUR-APL-2015-04033

PATIENT
  Age: 69 Year
  Sex: Male

DRUGS (1)
  1. LEVOFLOXACIN 500MG (LEVOFLOXACIN) UNKNOWN, 500MG [Suspect]
     Active Substance: LEVOFLOXACIN
     Indication: BRONCHITIS
     Route: 048
     Dates: start: 20150413, end: 20150421

REACTIONS (3)
  - Diarrhoea [None]
  - Pyrexia [None]
  - Abdominal pain [None]

NARRATIVE: CASE EVENT DATE: 20150421
